FAERS Safety Report 24203453 (Version 1)
Quarter: 2024Q3

REPORT INFORMATION
  Report Type: Spontaneous
  Country: US (occurrence: US)
  Receive Date: 20240813
  Receipt Date: 20240813
  Transmission Date: 20241017
  Serious: Yes (Other)
  Sender: BAUSCH AND LOMB
  Company Number: US-BAUSCHBL-2024BNL031348

PATIENT

DRUGS (1)
  1. ERYTHROMYCIN [Suspect]
     Active Substance: ERYTHROMYCIN
     Indication: Ophthalmia neonatorum
     Dosage: (1 GRAM TUBE), LOT NUMBER ADMINISTERED WAS NOT RECORDED
     Route: 065

REACTIONS (3)
  - Chemical burns of eye [Unknown]
  - Suspected transmission of an infectious agent via product [Unknown]
  - Product quality issue [Unknown]
